FAERS Safety Report 9733459 (Version 5)
Quarter: 2014Q1

REPORT INFORMATION
  Report Type: Spontaneous
  Country: JP (occurrence: JP)
  Receive Date: 20131205
  Receipt Date: 20140213
  Transmission Date: 20141002
  Serious: Yes (Hospitalization, Other)
  Sender: FDA-Public Use
  Company Number: JP-PFIZER INC-2013346814

PATIENT
  Age: 84 Year
  Sex: Male

DRUGS (11)
  1. LYRICA [Suspect]
     Indication: HERPES ZOSTER
     Dosage: 25 MG, 2X/DAY
     Route: 048
     Dates: start: 20131126, end: 20131129
  2. LYRICA [Suspect]
     Dosage: 75 MG, 2X/DAY
     Route: 048
     Dates: start: 20131130, end: 20131201
  3. PLETAAL [Concomitant]
     Dosage: 50 MG, 2X/DAY
     Route: 048
     Dates: end: 20131203
  4. LENDORMIN [Concomitant]
     Dosage: 0.25 MG, 1X/DAY
     Route: 048
     Dates: end: 20131201
  5. LAXOBERON [Concomitant]
     Dosage: 5 MG, 1X/DAY
     Route: 048
     Dates: end: 20131201
  6. CALONAL [Concomitant]
     Dosage: 400 MG, 3X/DAY
     Route: 048
     Dates: start: 20131125, end: 20131203
  7. REBAMIPIDE [Concomitant]
     Dosage: 100 MG, 3X/DAY
     Route: 048
     Dates: start: 20131125, end: 20131203
  8. FAMOTIDINE [Concomitant]
     Dosage: 10 MG, 2X/DAY
     Route: 048
     Dates: start: 20131125, end: 20131127
  9. PREDNISOLONE [Concomitant]
     Dosage: 10 MG, 3X/DAY
     Route: 048
     Dates: start: 20131125, end: 20131127
  10. AZUNOL [Concomitant]
     Dosage: 2-5 TIMES DAILY
     Route: 048
     Dates: start: 20131125, end: 20131129
  11. ARASENA A [Concomitant]
     Dosage: 300 MG, 1X/DAY
     Route: 042
     Dates: start: 20131125, end: 20131129

REACTIONS (9)
  - Altered state of consciousness [Recovered/Resolved]
  - Herpes simplex encephalitis [Unknown]
  - Delirium [Unknown]
  - Fall [Unknown]
  - Decreased appetite [Recovered/Resolved]
  - Tremor [Recovered/Resolved]
  - Dysphagia [Recovered/Resolved]
  - Dizziness [Unknown]
  - Gait disturbance [Unknown]
